FAERS Safety Report 5488068-5 (Version None)
Quarter: 2007Q4

REPORT INFORMATION
  Report Type: 
  Country: None (occurrence: None)
  Receive Date: 20071017
  Receipt Date: 20070926
  Transmission Date: 20080405
  Serious: No
  Sender: FDA-Public Use
  Company Number: GR-AVENTIS-200718388GDDC

PATIENT
  Sex: Female

DRUGS (3)
  1. ARAVA [Suspect]
     Dosage: DOSE: UNK
     Dates: start: 20070101
  2. METHOTREXATE [Suspect]
  3. METHYLPREDNISOLONE [Suspect]

REACTIONS (3)
  - ABORTION INDUCED [None]
  - DRUG EXPOSURE DURING PREGNANCY [None]
  - TREATMENT NONCOMPLIANCE [None]
